FAERS Safety Report 9216926 (Version 1)
Quarter: 2013Q2

REPORT INFORMATION
  Report Type: Spontaneous
  Country: US (occurrence: US)
  Receive Date: 20130408
  Receipt Date: 20130408
  Transmission Date: 20140414
  Serious: Yes (Other)
  Sender: FDA-Public Use
  Company Number: US-GLAXOSMITHKLINE-A1011860A

PATIENT
  Age: 40 Year
  Sex: Male
  Weight: 54.5 kg

DRUGS (4)
  1. POTIGA [Suspect]
     Indication: CONVULSION
     Dosage: 100MG UNKNOWN
     Route: 048
     Dates: start: 20120705, end: 20120709
  2. VIMPAT [Concomitant]
     Dosage: 300MG PER DAY
  3. DILANTIN [Concomitant]
     Dosage: 300MG PER DAY
  4. MAXALT [Concomitant]

REACTIONS (1)
  - Urinary retention [Recovered/Resolved]
